FAERS Safety Report 7539510-7 (Version None)
Quarter: 2011Q2

REPORT INFORMATION
  Report Type: 
  Country: None (occurrence: None)
  Receive Date: 20110610
  Receipt Date: 20110531
  Transmission Date: 20111010
  Serious: Yes (Hospitalization)
  Sender: FDA-Public Use
  Company Number: JP-PFIZER INC-2010130871

PATIENT
  Age: 78 Year
  Sex: Female
  Weight: 63 kg

DRUGS (23)
  1. SELBEX [Concomitant]
     Route: 048
     Dates: start: 20051026
  2. RHYTHMY [Concomitant]
     Route: 048
     Dates: start: 20050713
  3. LANDEL [Concomitant]
     Indication: HYPERTENSION
     Route: 048
     Dates: start: 20060302
  4. METFFORMIN HYDROCHLORIDE [Concomitant]
     Indication: DIABETES MELLITUS
     Route: 048
  5. SILECE [Concomitant]
     Route: 048
  6. CEROCRAL [Concomitant]
     Route: 048
  7. ALPRAZOLAM [Concomitant]
     Route: 048
  8. RHUBARB [Concomitant]
     Route: 048
  9. NORVASC [Concomitant]
     Indication: HYPERTENSION
     Route: 048
     Dates: start: 20050819
  10. BISOPROLOL FUMARATE [Concomitant]
     Indication: HYPERTENSION
     Route: 048
     Dates: start: 20051116
  11. LOXONIN [Concomitant]
     Indication: ANALGESIC THERAPY
     Dosage: UNK
     Route: 048
     Dates: start: 20051109, end: 20101013
  12. KETOPROFEN [Concomitant]
     Indication: ANALGESIC THERAPY
     Route: 062
  13. EXEMESTANE [Suspect]
     Indication: BREAST CANCER
     Dosage: 25 MG, 1X/DAY
     Route: 048
     Dates: start: 20081209, end: 20101213
  14. POSTERISAN [Concomitant]
     Indication: HAEMORRHOIDS
     Route: 062
  15. ANASTROZOLE [Suspect]
     Indication: BREAST CANCER
     Dosage: UNK
     Dates: start: 20050704, end: 20081207
  16. DIOVANE [Concomitant]
     Indication: HYPERTENSION
     Route: 048
     Dates: start: 20051216
  17. TENAXIL [Concomitant]
     Indication: HYPERTENSION
     Route: 048
     Dates: start: 20051012
  18. NIFLAN [Concomitant]
     Indication: POSTOPERATIVE ANALGESIA
     Route: 031
  19. HEMOCURON [Concomitant]
     Indication: HAEMORRHOIDS
     Route: 048
  20. MAGNESIUM OXIDE [Concomitant]
     Route: 048
  21. AREDIA [Concomitant]
     Indication: OSTEONECROSIS
     Route: 042
  22. YODEL [Concomitant]
     Indication: CONSTIPATION
     Dosage: UNK
     Route: 048
     Dates: start: 20070427
  23. ATELEC [Concomitant]
     Indication: HYPERTENSION
     Dosage: UNK
     Route: 048
     Dates: start: 20090428

REACTIONS (1)
  - NEPHROGENIC ANAEMIA [None]
